FAERS Safety Report 9196011 (Version 1)
Quarter: 2013Q1

REPORT INFORMATION
  Report Type: Spontaneous
  Country: US (occurrence: US)
  Receive Date: 20130328
  Receipt Date: 20130328
  Transmission Date: 20140127
  Serious: Yes (Death)
  Sender: FDA-Public Use
  Company Number: PHEH2013US006971

PATIENT
  Age: 64 Year
  Sex: Male

DRUGS (4)
  1. ZOMETA [Suspect]
     Indication: GLOTTIS CARCINOMA
     Dosage: 4 MG/5 ML
     Route: 042
     Dates: start: 20120610
  2. ERBITUX [Concomitant]
     Dosage: UNK UKN, UNK
  3. FLOUROURACIL [Concomitant]
     Dosage: UNK UKN, UNK
  4. CARBOPLATIN [Concomitant]
     Dosage: UNK UKN, UNK

REACTIONS (1)
  - Death [Fatal]
